FAERS Safety Report 5135940-1 (Version None)
Quarter: 2006Q4

REPORT INFORMATION
  Report Type: 
  Country: None (occurrence: None)
  Receive Date: 20061020
  Receipt Date: 20061010
  Transmission Date: 20070319
  Serious: Yes (Other)
  Sender: FDA-Public Use
  Company Number: 2006125156

PATIENT
  Age: 54 Year
  Sex: Female

DRUGS (1)
  1. CELEBREX [Suspect]

REACTIONS (1)
  - ARRHYTHMIA [None]
